FAERS Safety Report 5024756-2 (Version None)
Quarter: 2006Q2

REPORT INFORMATION
  Report Type: 
  Country: None (occurrence: None)
  Receive Date: 20060613
  Receipt Date: 20060601
  Transmission Date: 20061013
  Serious: Yes (Hospitalization)
  Sender: FDA-Public Use
  Company Number: EE-BRISTOL-MYERS SQUIBB COMPANY-13397773

PATIENT
  Age: 51 Year
  Sex: Male

DRUGS (4)
  1. ATAZANAVIR [Suspect]
     Indication: HIV INFECTION
     Route: 048
     Dates: start: 20060509
  2. RITONAVIR [Suspect]
     Indication: HIV INFECTION
     Route: 048
     Dates: start: 20060509
  3. LAMIVUDINE [Concomitant]
     Dates: start: 20060509
  4. RITONAVIR [Concomitant]
     Dates: start: 20060509

REACTIONS (2)
  - GASTROENTERITIS [None]
  - PNEUMONIA [None]
